FAERS Safety Report 9228594 (Version 1)
Quarter: 2013Q1

REPORT INFORMATION
  Report Type: Spontaneous
  Country: US (occurrence: None)
  Receive Date: 20121018
  Receipt Date: 20121018
  Transmission Date: 20140127
  Serious: Yes (Other)
  Sender: FDA-Public Use
  Company Number: FK201200318

PATIENT
  Age: 17 Year
  Sex: Male

DRUGS (2)
  1. NAROPIN [Suspect]
     Indication: NERVE BLOCK
  2. SUFENTANIL (SUFENTANIL) [Concomitant]

REACTIONS (1)
  - Hypersensitivity [None]
